FAERS Safety Report 24448730 (Version 1)
Quarter: 2024Q4

REPORT INFORMATION
  Report Type: Spontaneous
  Country: FR (occurrence: FR)
  Receive Date: 20241017
  Receipt Date: 20241017
  Transmission Date: 20250115
  Serious: Yes (Hospitalization)
  Sender: ACCORD
  Company Number: None

PATIENT
  Age: 35 Year
  Sex: Male

DRUGS (4)
  1. LEVETIRACETAM [Suspect]
     Active Substance: LEVETIRACETAM
     Indication: Status epilepticus
     Dates: start: 20240817, end: 20240817
  2. CLOBAZAM [Suspect]
     Active Substance: CLOBAZAM
     Indication: Status epilepticus
     Dosage: STRENGTH: 10 MG, CAPSULE
     Dates: start: 20240818, end: 20240822
  3. BRIGATINIB [Concomitant]
     Active Substance: BRIGATINIB
     Dosage: STRENGTH: 180 MG
     Dates: start: 20201125, end: 20240820
  4. LEVETIRACETAM [Suspect]
     Active Substance: LEVETIRACETAM
     Indication: Status epilepticus
     Dates: start: 20240818, end: 20240822

REACTIONS (2)
  - Hepatic cytolysis [Recovering/Resolving]
  - Blood creatine phosphokinase increased [Recovering/Resolving]

NARRATIVE: CASE EVENT DATE: 20240817
